FAERS Safety Report 7814789-2 (Version None)
Quarter: 2011Q4

REPORT INFORMATION
  Report Type: 
  Country: None (occurrence: None)
  Receive Date: 20111014
  Receipt Date: 20110930
  Transmission Date: 20120403
  Serious: Yes (Hospitalization)
  Sender: FDA-Public Use
  Company Number: FR-ROCHE-770571

PATIENT
  Age: 64 Year
  Sex: Female

DRUGS (12)
  1. SPIRONOLACTONE [Concomitant]
  2. FENOFIBRATE [Concomitant]
  3. MORPHINE SULPHATE SR [Concomitant]
  4. VITAMIN D [Concomitant]
  5. KETOPROFEN [Concomitant]
  6. PREDNISONE [Suspect]
     Indication: SJOGREN'S SYNDROME
     Dates: start: 20020101, end: 20091201
  7. BONIVA [Suspect]
     Indication: PRODUCT USED FOR UNKNOWN INDICATION
     Dates: start: 20070927, end: 20090311
  8. ESCITALOPRAM [Concomitant]
  9. FOLIC ACID [Concomitant]
  10. CHONDROITIN SULFATE SODIUM [Concomitant]
  11. METHOTREXATE [Concomitant]
  12. ZOLPIDEM [Concomitant]

REACTIONS (2)
  - DENTAL ALVEOLAR ANOMALY [None]
  - PERIODONTAL DISEASE [None]
